FAERS Safety Report 17730735 (Version 3)
Quarter: 2020Q2

REPORT INFORMATION
  Report Type: Spontaneous
  Country: US (occurrence: US)
  Receive Date: 20200430
  Receipt Date: 20200630
  Transmission Date: 20200714
  Serious: No
  Sender: FDA-Public Use
  Company Number: US-GLAXOSMITHKLINE-US2020AMR071408

PATIENT
  Sex: Female

DRUGS (1)
  1. ZEJULA [Suspect]
     Active Substance: NIRAPARIB
     Indication: OVARIAN CANCER
     Dosage: 200 MG, QD (ALTERNATING 100MG ONE DAY 200MG THE NEXT)
     Dates: start: 20200310

REACTIONS (5)
  - Heart rate increased [Not Recovered/Not Resolved]
  - Anaemia [Unknown]
  - Bone marrow disorder [Unknown]
  - Thyroid disorder [Not Recovered/Not Resolved]
  - Off label use [Unknown]
